FAERS Safety Report 14185613 (Version 3)
Quarter: 2017Q4

REPORT INFORMATION
  Report Type: Spontaneous
  Country: JP (occurrence: JP)
  Receive Date: 20171114
  Receipt Date: 20171205
  Transmission Date: 20180321
  Serious: Yes (Hospitalization)
  Sender: FDA-Public Use
  Company Number: JP-PFIZER INC-2017487006

PATIENT
  Age: 7 Decade
  Sex: Male

DRUGS (2)
  1. MEROPENEM. [Suspect]
     Active Substance: MEROPENEM
     Dosage: UNK
     Route: 041
  2. THROMBOMODULIN ALFA [Concomitant]
     Active Substance: THROMBOMODULIN ALFA
     Dosage: UNK

REACTIONS (3)
  - Liver abscess [Recovering/Resolving]
  - Clostridium difficile infection [Unknown]
  - Disseminated intravascular coagulation [Recovering/Resolving]
